FAERS Safety Report 14545910 (Version 1)
Quarter: 2018Q1

REPORT INFORMATION
  Report Type: Spontaneous
  Country: BE (occurrence: BE)
  Receive Date: 20180219
  Receipt Date: 20180219
  Transmission Date: 20180509
  Serious: Yes (Hospitalization, Other)
  Sender: FDA-Public Use
  Company Number: BE-BRISTOL-MYERS SQUIBB COMPANY-BMS-2018-014139

PATIENT
  Age: 70 Year
  Sex: Male

DRUGS (1)
  1. NIVOLUMAB [Suspect]
     Active Substance: NIVOLUMAB
     Indication: NON-SMALL CELL LUNG CANCER
     Dosage: UNK
     Route: 065
     Dates: start: 201601

REACTIONS (7)
  - Thyroiditis [Unknown]
  - Asthenia [Unknown]
  - Infection [Unknown]
  - Headache [Unknown]
  - Decreased appetite [Unknown]
  - Myocardial infarction [Unknown]
  - Oedema [Unknown]
